FAERS Safety Report 20705196 (Version 1)
Quarter: 2022Q2

REPORT INFORMATION
  Report Type: Spontaneous
  Country: HR (occurrence: HR)
  Receive Date: 20220413
  Receipt Date: 20220413
  Transmission Date: 20220721
  Serious: Yes (Other)
  Sender: FDA-Public Use
  Company Number: None

PATIENT
  Age: 17 Year
  Sex: Female

DRUGS (4)
  1. XANAX [Suspect]
     Active Substance: ALPRAZOLAM
     Dosage: 8 DF, 1X/DAY
     Route: 048
     Dates: start: 20220116, end: 20220116
  2. FLUOXETINE HYDROCHLORIDE [Suspect]
     Active Substance: FLUOXETINE HYDROCHLORIDE
     Dosage: 7 DF, 1X/DAY
     Route: 048
     Dates: start: 20220116, end: 20220116
  3. NORMABEL [Suspect]
     Active Substance: DIAZEPAM
     Dosage: 53 MG, 1X/DAY
     Route: 048
     Dates: start: 20220116, end: 20220116
  4. ALPRAZOLAM [Suspect]
     Active Substance: ALPRAZOLAM
     Dosage: 6 DF, 1X/DAY
     Route: 048
     Dates: start: 20220116, end: 20220116

REACTIONS (3)
  - Intentional overdose [Unknown]
  - Suicide attempt [Unknown]
  - Somnolence [Unknown]

NARRATIVE: CASE EVENT DATE: 20220116
